FAERS Safety Report 5049516-8 (Version None)
Quarter: 2006Q3

REPORT INFORMATION
  Report Type: 
  Country: None (occurrence: None)
  Receive Date: 20060712
  Receipt Date: 20060628
  Transmission Date: 20061208
  Serious: Yes (Death)
  Sender: FDA-Public Use
  Company Number: US-NOVOPROD-254542

PATIENT

DRUGS (2)
  1. NOVOSEVEN [Suspect]
     Indication: SUBDURAL HAEMORRHAGE
     Dosage: 1.2 MG, SINGLE
     Route: 042
  2. WARFARIN SODIUM [Concomitant]
     Indication: ILL-DEFINED DISORDER

REACTIONS (1)
  - MYOCARDIAL INFARCTION [None]
